FAERS Safety Report 23798413 (Version 1)
Quarter: 2024Q2

REPORT INFORMATION
  Report Type: Spontaneous
  Country: US (occurrence: None)
  Receive Date: 20240426
  Receipt Date: 20240426
  Transmission Date: 20240716
  Serious: Yes (Hospitalization)
  Sender: FDA-Public Use
  Company Number: None

PATIENT
  Age: 65 Year
  Sex: Female
  Weight: 74 kg

DRUGS (8)
  1. TACROLIMUS [Suspect]
     Active Substance: TACROLIMUS
     Indication: Liver transplant
     Dosage: FREQUENCY : TWICE A DAY;?
     Route: 048
     Dates: start: 20230714, end: 20231224
  2. TACROLIMUS [Suspect]
     Active Substance: TACROLIMUS
     Indication: Renal transplant
  3. DAPSONE [Concomitant]
     Active Substance: DAPSONE
     Dates: start: 20230716, end: 20240118
  4. WARFARIN [Concomitant]
     Active Substance: WARFARIN
     Dates: start: 20120601
  5. PREDNISONE [Concomitant]
     Active Substance: PREDNISONE
     Dates: start: 20230718
  6. CELLCEPT [Concomitant]
     Active Substance: MYCOPHENOLATE MOFETIL
     Dates: start: 20230717
  7. TACROLIMUS [Concomitant]
     Active Substance: TACROLIMUS
     Dates: start: 20230714, end: 20231224
  8. LEVOTHYROXINE [Concomitant]
     Active Substance: LEVOTHYROXINE\LEVOTHYROXINE SODIUM

REACTIONS (3)
  - Mental status changes [None]
  - Paranoia [None]
  - Therapy change [None]

NARRATIVE: CASE EVENT DATE: 20231218
